FAERS Safety Report 7369901-9 (Version None)
Quarter: 2011Q1

REPORT INFORMATION
  Report Type: 
  Country: None (occurrence: None)
  Receive Date: 20110323
  Receipt Date: 20110225
  Transmission Date: 20110831
  Serious: Yes (Hospitalization)
  Sender: FDA-Public Use
  Company Number: US-B.I. PHARMACEUTICALS,INC./RIDGEFIELD-2010-BP-05851BP

PATIENT
  Sex: Male

DRUGS (1)
  1. FLOMAX [Suspect]
     Dosage: 0.4 MG
     Route: 048
     Dates: start: 20100201

REACTIONS (5)
  - CEREBROVASCULAR ACCIDENT [None]
  - NOCTURIA [None]
  - DRUG INEFFECTIVE [None]
  - SOMNOLENCE [None]
  - DIZZINESS [None]
